FAERS Safety Report 9859915 (Version 1)
Quarter: 2014Q1

REPORT INFORMATION
  Report Type: Spontaneous
  Country: US (occurrence: US)
  Receive Date: 20140131
  Receipt Date: 20140131
  Transmission Date: 20141002
  Serious: No
  Sender: FDA-Public Use
  Company Number: US-009507513-1401USA009855

PATIENT
  Sex: Male

DRUGS (1)
  1. PROVENTIL [Suspect]
     Indication: ASTHMA
     Dosage: AS NEDED
     Route: 055

REACTIONS (3)
  - Malaise [Unknown]
  - Feeling abnormal [Unknown]
  - Wrong technique in drug usage process [Unknown]
